FAERS Safety Report 7316432-8 (Version None)
Quarter: 2011Q1

REPORT INFORMATION
  Report Type: 
  Country: None (occurrence: None)
  Receive Date: 20110225
  Receipt Date: 20110218
  Transmission Date: 20110831
  Serious: Yes (Other)
  Sender: FDA-Public Use
  Company Number: JP-MERCK-1102USA02547

PATIENT
  Age: 33 Year
  Sex: Female

DRUGS (1)
  1. PEPCID RPD [Suspect]
     Route: 048
     Dates: start: 20080801, end: 20080801

REACTIONS (1)
  - ERYTHEMA NODOSUM [None]
